FAERS Safety Report 16024778 (Version 1)
Quarter: 2019Q1

REPORT INFORMATION
  Report Type: Spontaneous
  Country: NL (occurrence: NL)
  Receive Date: 20190301
  Receipt Date: 20190301
  Transmission Date: 20190418
  Serious: Yes (Death, Other)
  Sender: FDA-Public Use
  Company Number: NL-GILEAD-2019-0393900

PATIENT
  Age: 54 Year
  Sex: Male
  Weight: 74 kg

DRUGS (6)
  1. BIKTARVY [Suspect]
     Active Substance: BICTEGRAVIR SODIUM\EMTRICITABINE\TENOFOVIR ALAFENAMIDE FUMARATE
     Indication: HIV INFECTION
     Dosage: 1 DAAGS
     Route: 048
     Dates: start: 20181208, end: 20181220
  2. DEXAMETHASONE. [Concomitant]
     Active Substance: DEXAMETHASONE
     Dosage: 1DD40MG
     Dates: start: 20181216
  3. IMMUNOGLOBULIN [IMMUNOGLOBULINS NOS] [Concomitant]
     Active Substance: IMMUNE GLOBULIN NOS
     Dates: start: 20181217
  4. PARACETAMOL A [Concomitant]
     Active Substance: ACETAMINOPHEN
     Dosage: 4DD 1 GRAM
     Dates: start: 20181207, end: 20181221
  5. THIAMINE HCL [Concomitant]
     Active Substance: THIAMINE HYDROCHLORIDE
     Dosage: 1DD100MG
     Dates: start: 20181208
  6. FLUCONAZOLE. [Suspect]
     Active Substance: FLUCONAZOLE
     Indication: ORAL CANDIDIASIS
     Dosage: 1 DAAGS
     Route: 048
     Dates: start: 20181217, end: 20181220

REACTIONS (2)
  - Hepatic failure [Fatal]
  - Hepatitis [Fatal]

NARRATIVE: CASE EVENT DATE: 20181220
